FAERS Safety Report 20440724 (Version 1)
Quarter: 2022Q1

REPORT INFORMATION
  Report Type: Spontaneous
  Country: US (occurrence: US)
  Receive Date: 20220207
  Receipt Date: 20220207
  Transmission Date: 20220424
  Serious: No
  Sender: FDA-Public Use
  Company Number: US-SA-SAC20220202001268

PATIENT
  Age: 66 Year
  Sex: Male

DRUGS (27)
  1. DUPIXENT [Suspect]
     Active Substance: DUPILUMAB
     Indication: Asthma
     Dosage: 300 MG, QOW
     Route: 058
     Dates: start: 20211018
  2. TADALAFIL [Concomitant]
     Active Substance: TADALAFIL
  3. ZINC [Concomitant]
     Active Substance: ZINC
  4. VITAMIN D2 [Concomitant]
     Active Substance: ERGOCALCIFEROL
  5. VITAMIN B1 [Concomitant]
     Active Substance: THIAMINE HYDROCHLORIDE
  6. RYBELSUS [Concomitant]
     Active Substance: SEMAGLUTIDE
  7. FLUOXETINE HYDROCHLORIDE [Concomitant]
     Active Substance: FLUOXETINE HYDROCHLORIDE
  8. TRAZODONE HYDROCHLORIDE [Concomitant]
     Active Substance: TRAZODONE HYDROCHLORIDE
  9. CINNAMON\HERBALS [Concomitant]
     Active Substance: CINNAMON\HERBALS
  10. MENAQUINONE 6 [Concomitant]
     Active Substance: MENAQUINONE 6
  11. NEXIUM [ESOMEPRAZOLE MAGNESIUM TRIHYDRATE] [Concomitant]
  12. AMLODIPINE BESYLATE [Concomitant]
     Active Substance: AMLODIPINE BESYLATE
  13. PRAVASTATIN SODIUM [Concomitant]
     Active Substance: PRAVASTATIN SODIUM
  14. ZAFIRLUKAST [Concomitant]
     Active Substance: ZAFIRLUKAST
  15. LEVALBUTEROL HYDROCHLORIDE [Concomitant]
     Active Substance: LEVALBUTEROL HYDROCHLORIDE
  16. SILDENAFIL CITRATE [Concomitant]
     Active Substance: SILDENAFIL CITRATE
  17. JANUVIA [Concomitant]
     Active Substance: SITAGLIPTIN PHOSPHATE
  18. FLUCONAZOLE [Concomitant]
     Active Substance: FLUCONAZOLE
  19. FISH OIL [Concomitant]
     Active Substance: FISH OIL
  20. VITAMIN B12 [Concomitant]
     Active Substance: CYANOCOBALAMIN
  21. NASONEX [Concomitant]
     Active Substance: MOMETASONE FUROATE
  22. SINGULAIR [Concomitant]
     Active Substance: MONTELUKAST SODIUM
  23. PREDNISONE [Concomitant]
     Active Substance: PREDNISONE
  24. ADVAIR HFA [Concomitant]
     Active Substance: FLUTICASONE PROPIONATE\SALMETEROL XINAFOATE
  25. VITAMIN C [Concomitant]
     Active Substance: ASCORBIC ACID
  26. COVID-19 VACCINE [Concomitant]
     Dosage: UNK
  27. VITAMIN D3 [Concomitant]
     Active Substance: CHOLECALCIFEROL

REACTIONS (1)
  - Insomnia [Not Recovered/Not Resolved]
